FAERS Safety Report 4444804-8 (Version None)
Quarter: 2004Q3

REPORT INFORMATION
  Report Type: 
  Country: None (occurrence: None)
  Receive Date: 20040907
  Receipt Date: 20040907
  Transmission Date: 20050211
  Serious: Yes (Disabling)
  Sender: FDA-Public Use
  Company Number: None

PATIENT
  Age: 39 Year
  Sex: Male
  Weight: 77.1115 kg

DRUGS (1)
  1. PREDNISONE [Suspect]
     Indication: ABDOMINAL PAIN
     Dosage: 10 MG X 3 TWICE DAILY

REACTIONS (2)
  - ASEPTIC NECROSIS BONE [None]
  - BONE DISORDER [None]
